FAERS Safety Report 23972998 (Version 1)
Quarter: 2024Q2

REPORT INFORMATION
  Report Type: Spontaneous
  Country: ES (occurrence: None)
  Receive Date: 20240613
  Receipt Date: 20240613
  Transmission Date: 20240715
  Serious: Yes (Other)
  Sender: FDA-Public Use
  Company Number: 2024A072477

PATIENT
  Age: 44 Year
  Sex: Female
  Weight: 79 kg

DRUGS (1)
  1. TEZSPIRE [Suspect]
     Active Substance: TEZEPELUMAB-EKKO
     Indication: Asthma
     Dosage: TEZEPELUMAB 210 MG DE TEZEPELUMAB MEDIANTE INYECCI?N SUBCUT?NEA CADA 4 SEMANAS.
     Route: 058
     Dates: start: 20231013

REACTIONS (1)
  - Abnormal loss of weight [Not Recovered/Not Resolved]

NARRATIVE: CASE EVENT DATE: 20240101
